FAERS Safety Report 10016865 (Version 1)
Quarter: 2014Q1

REPORT INFORMATION
  Report Type: Spontaneous
  Country: FR (occurrence: FR)
  Receive Date: 20140318
  Receipt Date: 20140318
  Transmission Date: 20141002
  Serious: Yes (Hospitalization)
  Sender: FDA-Public Use
  Company Number: FR-ROCHE-1360213

PATIENT
  Age: 73 Year
  Sex: Male

DRUGS (5)
  1. ZELBORAF [Suspect]
     Indication: SUPERFICIAL SPREADING MELANOMA STAGE UNSPECIFIED
     Route: 048
     Dates: start: 201307, end: 201308
  2. INEXIUM [Concomitant]
  3. LASILIX [Concomitant]
  4. TOPALGIC (FRANCE) [Concomitant]
  5. URBANYL [Concomitant]

REACTIONS (5)
  - Renal failure acute [Recovered/Resolved]
  - Liver disorder [Recovered/Resolved]
  - Squamous cell carcinoma [Recovered/Resolved]
  - Photosensitivity reaction [Recovered/Resolved]
  - Scab [Recovered/Resolved]
